FAERS Safety Report 17121518 (Version 1)
Quarter: 2019Q4

REPORT INFORMATION
  Report Type: Spontaneous
  Country: CM (occurrence: CM)
  Receive Date: 20191206
  Receipt Date: 20191206
  Transmission Date: 20200122
  Serious: Yes (Other)
  Sender: FDA-Public Use
  Company Number: CM-GLAXOSMITHKLINE-CM2019220077

PATIENT
  Age: 5 Year
  Sex: Female

DRUGS (1)
  1. CATAFLAM [Suspect]
     Active Substance: DICLOFENAC POTASSIUM
     Indication: ABSCESS
     Dosage: 50 GTT, QD (DROPS)
     Route: 048
     Dates: start: 20191125, end: 20191127

REACTIONS (3)
  - Eye swelling [Unknown]
  - Eye inflammation [Unknown]
  - Incorrect route of product administration [Unknown]

NARRATIVE: CASE EVENT DATE: 20191126
